FAERS Safety Report 24349561 (Version 1)
Quarter: 2024Q3

REPORT INFORMATION
  Report Type: Report from Study
  Country: US (occurrence: US)
  Receive Date: 20240923
  Receipt Date: 20240923
  Transmission Date: 20241017
  Serious: Yes (Hospitalization)
  Sender: ROCHE
  Company Number: US-ROCHE-10000065311

PATIENT
  Age: 69 Year
  Sex: Female

DRUGS (16)
  1. OCREVUS [Suspect]
     Active Substance: OCRELIZUMAB
     Indication: Multiple sclerosis
     Dosage: DATE OF TREATMENT: 02/FEB/2021, 21/FEB/2021, 24/SEP/2021, 29/MAR/2022, 06/OCT/2022, 12/APR/2023.
     Route: 042
  2. LISINOPRIL [Concomitant]
     Active Substance: LISINOPRIL
  3. METFORMIN HYDROCHLORIDE [Concomitant]
     Active Substance: METFORMIN HYDROCHLORIDE
  4. SIMVASTATIN [Concomitant]
     Active Substance: SIMVASTATIN
  5. POTASSIUM CHLORIDE [Concomitant]
     Active Substance: POTASSIUM CHLORIDE
  6. PROGESTERONE [Concomitant]
     Active Substance: PROGESTERONE
  7. ASPIRIN [Concomitant]
     Active Substance: ASPIRIN
  8. BACLOFEN [Concomitant]
     Active Substance: BACLOFEN
  9. PANTOPRAZOLE [Concomitant]
     Active Substance: PANTOPRAZOLE
  10. ONDANSETRON [Concomitant]
     Active Substance: ONDANSETRON
  11. LORATADINE [Concomitant]
     Active Substance: LORATADINE
  12. ESCITALOPRAM OXALATE [Concomitant]
     Active Substance: ESCITALOPRAM OXALATE
  13. LEXAPRO [Concomitant]
     Active Substance: ESCITALOPRAM OXALATE
  14. FUROSEMIDE [Concomitant]
     Active Substance: FUROSEMIDE
  15. DALFAMPRIDINE [Concomitant]
     Active Substance: DALFAMPRIDINE
  16. SULFAMETHOXAZOLE [Concomitant]
     Active Substance: SULFAMETHOXAZOLE

REACTIONS (13)
  - Visual impairment [Not Recovered/Not Resolved]
  - Visual field defect [Not Recovered/Not Resolved]
  - Vomiting [Unknown]
  - Swelling [Recovering/Resolving]
  - Memory impairment [Recovering/Resolving]
  - Cerebrovascular accident [Recovered/Resolved]
  - Cerebral disorder [Not Recovered/Not Resolved]
  - Ataxia [Unknown]
  - Nausea [Unknown]
  - Amnesia [Unknown]
  - Muscle spasms [Unknown]
  - Affect lability [Unknown]
  - Gastroenteritis [Unknown]

NARRATIVE: CASE EVENT DATE: 20240801
